FAERS Safety Report 8875434 (Version 1)
Quarter: 2012Q4

REPORT INFORMATION
  Report Type: 
  Country: CN (occurrence: CN)
  Receive Date: 20121029
  Receipt Date: 20121029
  Transmission Date: 20130627
  Serious: Yes (Other)
  Sender: FDA-Public Use
  Company Number: CN-BAYER-2012-110245

PATIENT

DRUGS (1)
  1. NIMOTOP [Suspect]
     Indication: DISTENDED BLOOD VESSELS
     Dosage: UNK
     Dates: start: 20120918, end: 20121008

REACTIONS (2)
  - Vasospasm [None]
  - Apallic syndrome [None]
